FAERS Safety Report 10401744 (Version 1)
Quarter: 2014Q3

REPORT INFORMATION
  Report Type: Spontaneous
  Country: US (occurrence: None)
  Receive Date: 20140819
  Receipt Date: 20140819
  Transmission Date: 20150326
  Serious: Yes (Other)
  Sender: FDA-Public Use
  Company Number: None

PATIENT
  Age: 67 Year
  Sex: Female
  Weight: 49.44 kg

DRUGS (2)
  1. BUDESONIDE. [Suspect]
     Active Substance: BUDESONIDE
     Indication: MIDDLE EAR INFLAMMATION
     Dosage: 1 SQUIRT IN EACH NOSTRIL
     Route: 055
     Dates: start: 20140815, end: 20140815
  2. BUDESONIDE. [Suspect]
     Active Substance: BUDESONIDE
     Indication: NASAL CONGESTION
     Dosage: 1 SQUIRT IN EACH NOSTRIL
     Route: 055
     Dates: start: 20140815, end: 20140815

REACTIONS (6)
  - Product substitution issue [None]
  - Heart rate increased [None]
  - Asthma [None]
  - Blood pressure increased [None]
  - Chest discomfort [None]
  - Product quality issue [None]

NARRATIVE: CASE EVENT DATE: 20140815
